FAERS Safety Report 8116922-4 (Version None)
Quarter: 2012Q1

REPORT INFORMATION
  Report Type: 
  Country: None (occurrence: None)
  Receive Date: 20120206
  Receipt Date: 20120131
  Transmission Date: 20120608
  Serious: Yes (Life-Threatening, Hospitalization, Other)
  Sender: FDA-Public Use
  Company Number: PHEH2012US001941

PATIENT
  Sex: Male
  Weight: 78.912 kg

DRUGS (4)
  1. GILENYA [Suspect]
     Indication: RELAPSING-REMITTING MULTIPLE SCLEROSIS
     Dosage: 0.5 MG, QD
     Route: 048
     Dates: start: 20110301
  2. XANAX [Concomitant]
     Indication: ANXIETY
     Dosage: 0.5 MG, QD
     Route: 048
  3. MULTI-VITAMIN [Concomitant]
     Dosage: UNK UKN, UNK
  4. FISH OIL [Concomitant]
     Dosage: UNK UKN, UNK

REACTIONS (10)
  - APHASIA [None]
  - TONGUE BITING [None]
  - FATIGUE [None]
  - CONVULSION [None]
  - GRAND MAL CONVULSION [None]
  - LETHARGY [None]
  - PARTIAL SEIZURES WITH SECONDARY GENERALISATION [None]
  - POSTICTAL STATE [None]
  - CONFUSIONAL STATE [None]
  - AMNESIA [None]
